FAERS Safety Report 8205136-5 (Version None)
Quarter: 2012Q1

REPORT INFORMATION
  Report Type: 
  Country: None (occurrence: None)
  Receive Date: 20120313
  Receipt Date: 20120308
  Transmission Date: 20120608
  Serious: Yes (Other)
  Sender: FDA-Public Use
  Company Number: JP-GLAXOSMITHKLINE-B0740779A

PATIENT
  Sex: Male

DRUGS (5)
  1. LAMICTAL [Suspect]
     Dosage: 70MG PER DAY
     Route: 048
     Dates: start: 20110902
  2. TEGRETOL [Concomitant]
     Indication: EPILEPSY
     Dosage: 450MG PER DAY
     Route: 048
  3. TOPIRAMATE [Concomitant]
     Indication: EPILEPSY
     Dosage: 400MG PER DAY
     Route: 048
     Dates: start: 20080526
  4. LAMICTAL [Suspect]
     Indication: EPILEPSY
     Dosage: 90MG PER DAY
     Route: 048
     Dates: start: 20110207, end: 20110901
  5. VALPROATE SODIUM [Concomitant]
     Indication: EPILEPSY
     Dosage: 950MG PER DAY
     Route: 048

REACTIONS (10)
  - BLOOD CALCIUM DECREASED [None]
  - C-REACTIVE PROTEIN INCREASED [None]
  - BLOOD UREA DECREASED [None]
  - MALAISE [None]
  - HEAT ILLNESS [None]
  - ANHIDROSIS [None]
  - PROTEIN TOTAL DECREASED [None]
  - FALL [None]
  - TETANY [None]
  - BLOOD ALKALINE PHOSPHATASE INCREASED [None]
